FAERS Safety Report 21774610 (Version 1)
Quarter: 2022Q4

REPORT INFORMATION
  Report Type: Report from Study
  Country: US (occurrence: US)
  Receive Date: 20221224
  Receipt Date: 20221224
  Transmission Date: 20230113
  Serious: No
  Sender: FDA-Public Use
  Company Number: US-ABBVIE-4209960

PATIENT
  Sex: Female

DRUGS (1)
  1. HUMIRA [Suspect]
     Active Substance: ADALIMUMAB
     Indication: Juvenile idiopathic arthritis
     Dosage: ALL EVENT ONSET AS 2022, SINUS HEADACHE CESSATION DATET: 2022
     Route: 058
     Dates: start: 20220721

REACTIONS (4)
  - Injection site urticaria [Unknown]
  - Vertigo [Not Recovered/Not Resolved]
  - Sinus headache [Recovered/Resolved]
  - Injection site pruritus [Unknown]
